FAERS Safety Report 8771320 (Version 1)
Quarter: 2012Q4

REPORT INFORMATION
  Report Type: 
  Country: US (occurrence: US)
  Receive Date: 20120905
  Receipt Date: 20120905
  Transmission Date: 20130627
  Serious: No
  Sender: FDA-Public Use
  Company Number: US-ASTRAZENECA-2012SE57444

PATIENT
  Age: 64 Year
  Sex: Female

DRUGS (17)
  1. BABY ASPIRIN [Suspect]
     Dosage: OVER THE COUNTER PRODUCT
     Route: 065
  2. LISINOPRIL [Suspect]
     Route: 048
  3. PRILOSEC [Suspect]
     Route: 048
  4. CELEBREX [Concomitant]
  5. LIPITOR [Concomitant]
  6. METFORMIN [Concomitant]
  7. METROGEL [Concomitant]
  8. NEXIUM [Concomitant]
  9. ORACEA [Concomitant]
  10. OTC FOLIC ACID [Concomitant]
  11. OTC MAGNESIUM [Concomitant]
  12. PRASCION [Concomitant]
  13. PROPANOLOL [Concomitant]
  14. TEMAZEPAM [Concomitant]
  15. CITRACAL [Concomitant]
     Dosage: OVER THE COUNTER PRODUCT
  16. CENTRUM [Concomitant]
     Dosage: OVER THE COUNTER PRODUCT
  17. PROTONIX [Concomitant]

REACTIONS (6)
  - Diabetes mellitus [Unknown]
  - Systemic lupus erythematosus [Unknown]
  - Arthritis [Unknown]
  - Rosacea [Unknown]
  - Back disorder [Unknown]
  - Drug ineffective [Unknown]
